FAERS Safety Report 7465289-3 (Version None)
Quarter: 2011Q2

REPORT INFORMATION
  Report Type: 
  Country: None (occurrence: None)
  Receive Date: 20110509
  Receipt Date: 20110505
  Transmission Date: 20111010
  Serious: Yes (Death)
  Sender: FDA-Public Use
  Company Number: PHFR2010GB05000

PATIENT
  Sex: Male

DRUGS (4)
  1. SERTRALINE [Concomitant]
     Dosage: 150MG
     Route: 048
  2. METHADONE [Concomitant]
     Dosage: 30MLS
     Route: 048
  3. CLOZARIL [Suspect]
     Indication: SCHIZOPHRENIA
     Dosage: 400 MG
     Route: 048
     Dates: start: 20060323
  4. ZOPICLONE [Concomitant]
     Dosage: 7.5MG
     Route: 048

REACTIONS (1)
  - SUDDEN DEATH [None]
